FAERS Safety Report 23405326 (Version 1)
Quarter: 2024Q1

REPORT INFORMATION
  Report Type: Report from Study
  Country: CA (occurrence: CA)
  Receive Date: 20240116
  Receipt Date: 20240116
  Transmission Date: 20240410
  Serious: Yes (Other)
  Sender: FDA-Public Use
  Company Number: CA-UCBSA-2024001878

PATIENT
  Sex: Female

DRUGS (1)
  1. CERTOLIZUMAB PEGOL [Suspect]
     Active Substance: CERTOLIZUMAB PEGOL
     Indication: Psoriatic arthropathy
     Dosage: 400 MICROGRAM, EV 2 WEEKS(QOW) X 3
     Route: 058
     Dates: start: 20231209

REACTIONS (2)
  - Psoriatic arthropathy [Unknown]
  - Nasopharyngitis [Recovering/Resolving]
